FAERS Safety Report 23701933 (Version 1)
Quarter: 2024Q2

REPORT INFORMATION
  Report Type: Spontaneous
  Country: US (occurrence: US)
  Receive Date: 20240403
  Receipt Date: 20240403
  Transmission Date: 20240716
  Serious: No
  Sender: FDA-Public Use
  Company Number: US-BAYER-2024A043941

PATIENT
  Sex: Female

DRUGS (2)
  1. MIRALAX [Suspect]
     Active Substance: POLYETHYLENE GLYCOL 3350
     Dosage: 1 DF
     Route: 065
  2. BISACODYL [Suspect]
     Active Substance: BISACODYL
     Indication: Bowel movement irregularity
     Dosage: 5 MG

REACTIONS (1)
  - Vomiting [Unknown]
